FAERS Safety Report 21346568 (Version 4)
Quarter: 2023Q2

REPORT INFORMATION
  Report Type: Report from Study
  Country: EG (occurrence: EG)
  Receive Date: 20220917
  Receipt Date: 20230519
  Transmission Date: 20230722
  Serious: Yes (Other)
  Sender: FDA-Public Use
  Company Number: EG-NOVARTISPH-NVSC2022EG209330

PATIENT
  Age: 14 Year
  Sex: Female

DRUGS (6)
  1. GILENYA [Suspect]
     Active Substance: FINGOLIMOD HYDROCHLORIDE
     Indication: Multiple sclerosis
     Dosage: 1 DOSAGE FORM, QD (ONE YEAR AND HALF AGO) (7 DAYS PER WEEK)
     Route: 048
     Dates: start: 202109
  2. GILENYA [Suspect]
     Active Substance: FINGOLIMOD HYDROCHLORIDE
     Dosage: 1 DOSAGE FORM (FOR 5 DAYS PER EVERY WEEK)
     Route: 048
     Dates: start: 202208
  3. GILENYA [Suspect]
     Active Substance: FINGOLIMOD HYDROCHLORIDE
     Dosage: 1 DOSAGE FORM, QOD
     Route: 048
     Dates: start: 20230320
  4. VITAMIN B12 [Concomitant]
     Active Substance: CYANOCOBALAMIN
     Indication: Prophylaxis
     Dosage: 1 DOSAGE FORM, QD
     Route: 048
     Dates: start: 202206
  5. VITAMIN D3 [Concomitant]
     Active Substance: CHOLECALCIFEROL
     Indication: Prophylaxis
     Dosage: 1 DOSAGE FORM, QD
     Route: 048
     Dates: start: 202206
  6. CONTROLOC [Concomitant]
     Active Substance: PANTOPRAZOLE SODIUM
     Indication: Gastrointestinal disorder
     Dosage: 1 DOSAGE FORM, QD, WHEN NEEDED
     Route: 048
     Dates: start: 202110

REACTIONS (6)
  - Abdominal discomfort [Not Recovered/Not Resolved]
  - Gastritis [Not Recovered/Not Resolved]
  - Decreased immune responsiveness [Unknown]
  - White blood cell count decreased [Not Recovered/Not Resolved]
  - Hepatic enzyme decreased [Not Recovered/Not Resolved]
  - Off label use [Unknown]

NARRATIVE: CASE EVENT DATE: 20211001
